FAERS Safety Report 23210733 (Version 1)
Quarter: 2023Q4

REPORT INFORMATION
  Report Type: Spontaneous
  Country: US (occurrence: US)
  Receive Date: 20231121
  Receipt Date: 20231121
  Transmission Date: 20240110
  Serious: No
  Sender: FDA-Public Use
  Company Number: US-AMRING PHARMACEUTICALS INC.-2023US001857

PATIENT

DRUGS (4)
  1. TRANEXAMIC ACID [Suspect]
     Active Substance: TRANEXAMIC ACID
     Indication: Heavy menstrual bleeding
     Dosage: 2 DF (TABLETS), Q8HR
     Route: 048
     Dates: start: 20230515
  2. TRANEXAMIC ACID [Suspect]
     Active Substance: TRANEXAMIC ACID
     Dosage: 2 DF (TABLETS), Q8HR
     Route: 048
     Dates: start: 20230516
  3. VITAMINS [Concomitant]
     Active Substance: VITAMINS
     Indication: Product used for unknown indication
     Dosage: UNK
     Route: 065
  4. IRON [Concomitant]
     Active Substance: IRON
     Indication: Product used for unknown indication
     Dosage: 28 MG
     Route: 065

REACTIONS (2)
  - Drug effect less than expected [Not Recovered/Not Resolved]
  - Product size issue [Not Recovered/Not Resolved]

NARRATIVE: CASE EVENT DATE: 20230516
